FAERS Safety Report 14860882 (Version 3)
Quarter: 2018Q3

REPORT INFORMATION
  Report Type: Spontaneous
  Country: IE (occurrence: IE)
  Receive Date: 20180508
  Receipt Date: 20180725
  Transmission Date: 20181010
  Serious: Yes (Death)
  Sender: FDA-Public Use
  Company Number: IE-CHEPLA-C20180486

PATIENT
  Age: 25 Year
  Sex: Male

DRUGS (5)
  1. OMEPRAZOLE PINEWOOD [Suspect]
     Active Substance: OMEPRAZOLE
  2. XENICAL [Suspect]
     Active Substance: ORLISTAT
  3. FLUZAC (FLUOXETINE HYDROCHLORIDE) [Suspect]
     Active Substance: FLUOXETINE HYDROCHLORIDE
  4. ZOPITAN [Suspect]
     Active Substance: ZOPICLONE
  5. GERMENTIN [Suspect]
     Active Substance: AMOXICILLIN\CLAVULANATE POTASSIUM

REACTIONS (2)
  - Completed suicide [Fatal]
  - Homicide [Fatal]

NARRATIVE: CASE EVENT DATE: 20151011
